FAERS Safety Report 4840504-0 (Version None)
Quarter: 2005Q4

REPORT INFORMATION
  Report Type: 
  Country: None (occurrence: None)
  Receive Date: 20051130
  Receipt Date: 20050826
  Transmission Date: 20060501
  Serious: No
  Sender: FDA-Public Use
  Company Number: US-BRISTOL-MYERS SQUIBB COMPANY-13091723

PATIENT
  Age: 66 Year
  Sex: Female
  Weight: 39 kg

DRUGS (8)
  1. ERBITUX [Suspect]
     Indication: COLON CANCER METASTATIC
     Route: 042
  2. BENADRYL [Concomitant]
     Indication: PREMEDICATION
  3. INDERAL [Concomitant]
  4. NORVASC [Concomitant]
  5. LOMOTIL [Concomitant]
  6. CALCIUM GLUCONATE [Concomitant]
  7. MULTI-VITAMIN [Concomitant]
  8. VITAMIN B COMPLEX CAP [Concomitant]

REACTIONS (1)
  - RASH [None]
